FAERS Safety Report 24646894 (Version 1)
Quarter: 2024Q4

REPORT INFORMATION
  Report Type: Spontaneous
  Country: IT (occurrence: IT)
  Receive Date: 20241121
  Receipt Date: 20241121
  Transmission Date: 20250115
  Serious: Yes (Other)
  Sender: GRANULES PHARMACEUTICALS INC
  Company Number: IT-GRANULES-IT-2024GRALIT00581

PATIENT
  Age: 27 Year
  Sex: Male

DRUGS (2)
  1. IBUPROFEN [Suspect]
     Active Substance: IBUPROFEN
     Indication: Back pain
     Dosage: 800 MG
     Route: 048
     Dates: start: 202312
  2. IBUPROFEN [Suspect]
     Active Substance: IBUPROFEN
     Dosage: 800 MG (TOTAL 2400 MG)
     Route: 048
     Dates: start: 202312

REACTIONS (2)
  - Neurotoxicity [Recovered/Resolved]
  - Toxicity to various agents [Recovered/Resolved]

NARRATIVE: CASE EVENT DATE: 20231201
